FAERS Safety Report 7367952-1 (Version None)
Quarter: 2011Q1

REPORT INFORMATION
  Report Type: 
  Country: None (occurrence: None)
  Receive Date: 20110322
  Receipt Date: 20110316
  Transmission Date: 20110831
  Serious: Yes (Other)
  Sender: FDA-Public Use
  Company Number: CHPA2011US04108

PATIENT
  Age: 31 Year
  Sex: Male
  Weight: 88.435 kg

DRUGS (1)
  1. LAMISIL AT SPRAY PUMP [Suspect]
     Indication: TINEA CRURIS
     Dosage: UNK, BID
     Route: 061
     Dates: start: 20110310, end: 20110310

REACTIONS (4)
  - SLEEP DISORDER [None]
  - APPLICATION SITE PAIN [None]
  - APPLICATION SITE PRURITUS [None]
  - FURUNCLE [None]
